FAERS Safety Report 6280298-8 (Version None)
Quarter: 2009Q3

REPORT INFORMATION
  Report Type: 
  Country: None (occurrence: None)
  Receive Date: 20090723
  Receipt Date: 20090706
  Transmission Date: 20100115
  Serious: Yes (Hospitalization)
  Sender: FDA-Public Use
  Company Number: DE-ASTRAZENECA-2009SE04638

PATIENT
  Age: 65 Year
  Sex: Female

DRUGS (5)
  1. BELOC-ZOK [Suspect]
     Route: 048
  2. AMITRIPTYLINE HCL [Suspect]
     Indication: DEPRESSION
     Route: 048
  3. ZYPREXA [Suspect]
     Route: 048
     Dates: start: 20080801, end: 20090507
  4. MIRTAZAPINE [Concomitant]
     Route: 048
  5. ATACAND [Concomitant]
     Route: 048

REACTIONS (1)
  - TARDIVE DYSKINESIA [None]
